FAERS Safety Report 6882253-3 (Version None)
Quarter: 2010Q3

REPORT INFORMATION
  Report Type: 
  Country: None (occurrence: None)
  Receive Date: 20100729
  Receipt Date: 20100721
  Transmission Date: 20110219
  Serious: Yes (Hospitalization, Other)
  Sender: FDA-Public Use
  Company Number: US-ELI_LILLY_AND_COMPANY-US201004004354

PATIENT
  Age: 58 Year
  Sex: Female

DRUGS (4)
  1. BYETTA [Suspect]
     Indication: TYPE 2 DIABETES MELLITUS
     Dosage: 5 UG, 2/D
     Dates: start: 20090601, end: 20090615
  2. BYETTA [Suspect]
     Dosage: 10 UG, 2/D
     Dates: start: 20090615, end: 20090624
  3. ACE INHIBITORS [Concomitant]
  4. DIURETICS [Concomitant]

REACTIONS (3)
  - IMPAIRED GASTRIC EMPTYING [None]
  - PANCREATITIS [None]
  - WEIGHT DECREASED [None]
